FAERS Safety Report 22771557 (Version 5)
Quarter: 2024Q3

REPORT INFORMATION
  Report Type: Spontaneous
  Country: DE (occurrence: DE)
  Receive Date: 20230801
  Receipt Date: 20240904
  Transmission Date: 20241016
  Serious: Yes (Hospitalization, Other)
  Sender: TORRENT
  Company Number: None

PATIENT
  Age: 74 Year
  Sex: Female
  Weight: 85 kg

DRUGS (12)
  1. MONTELUKAST [Suspect]
     Active Substance: MONTELUKAST SODIUM
     Indication: Lung disorder
     Dosage: UNK
     Route: 048
     Dates: start: 2003, end: 202302
  2. INSULIN NOS [Concomitant]
     Active Substance: INSULIN NOS
     Indication: Product used for unknown indication
     Dosage: UNK
     Route: 065
  3. MOMETASONE FUROATE [Concomitant]
     Active Substance: MOMETASONE FUROATE
     Indication: Sinusitis
     Dosage: UNKABZ 50 MICROGRAM NASENSP NDS 18 G
     Route: 045
  4. RASILEZ [Concomitant]
     Active Substance: ALISKIREN
     Indication: Hypertension
     Dosage: UNK(1-2 TIMES)
     Route: 065
  5. ALBUTEROL [Concomitant]
     Active Substance: ALBUTEROL
     Indication: Lung disorder
     Dosage: UNK
     Route: 055
  6. MIRTAZAPINE [Concomitant]
     Active Substance: MIRTAZAPINE
     Indication: Pain
     Dosage: UNKNOWN
     Route: 048
  7. GABAPENTIN [Concomitant]
     Active Substance: GABAPENTIN
     Indication: Pain
     Dosage: UNKNOWN
     Route: 048
  8. IBUPROFEN [Concomitant]
     Active Substance: IBUPROFEN
     Indication: Pain
     Dosage: UNKNOWN
     Route: 065
  9. PANTOPRAZOLE [Concomitant]
     Active Substance: PANTOPRAZOLE
     Indication: Abdominal discomfort
     Dosage: UNK (PRN)
     Route: 065
  10. PREGABALIN [Concomitant]
     Active Substance: PREGABALIN
     Indication: Pain
     Dosage: UNKNOWN
     Route: 048
  11. TRULICITY [Concomitant]
     Active Substance: DULAGLUTIDE
     Indication: Product used for unknown indication
     Dosage: UNK(THURSDAY EVENING )
     Route: 058
     Dates: start: 2000
  12. FLUTICASONE PROPIONATE\SALMETEROL XINAFOATE [Concomitant]
     Active Substance: FLUTICASONE PROPIONATE\SALMETEROL XINAFOATE
     Indication: Lung disorder
     Dosage: UNK(TWICE LATER ONCE EARLY)
     Route: 055

REACTIONS (48)
  - Renal failure [Recovering/Resolving]
  - Depression [Recovering/Resolving]
  - Dry mouth [Recovering/Resolving]
  - Abnormal behaviour [Recovering/Resolving]
  - Throat irritation [Recovering/Resolving]
  - Vomiting [Recovering/Resolving]
  - Immune system disorder [Recovering/Resolving]
  - Dyspepsia [Recovering/Resolving]
  - Thinking abnormal [Recovering/Resolving]
  - Constipation [Recovering/Resolving]
  - Anxiety [Recovering/Resolving]
  - Hyperarousal [Recovering/Resolving]
  - Muscle spasms [Recovering/Resolving]
  - Oedema [Recovering/Resolving]
  - Cholestatic liver injury [Recovering/Resolving]
  - Panic attack [Recovering/Resolving]
  - Nervousness [Recovering/Resolving]
  - Liver disorder [Recovering/Resolving]
  - Condition aggravated [Recovering/Resolving]
  - Sinus pain [Recovering/Resolving]
  - Asthenia [Recovering/Resolving]
  - Rash [Recovering/Resolving]
  - Quality of life decreased [Recovering/Resolving]
  - Restlessness [Recovering/Resolving]
  - Histamine level increased [Recovering/Resolving]
  - Contusion [Recovering/Resolving]
  - Obsessive-compulsive symptom [Recovering/Resolving]
  - Fatigue [Recovering/Resolving]
  - Mental disorder [Recovering/Resolving]
  - Oropharyngeal discomfort [Recovering/Resolving]
  - Nasal congestion [Recovering/Resolving]
  - Hypertension [Recovering/Resolving]
  - Arthropathy [Recovering/Resolving]
  - Cough [Recovering/Resolving]
  - Gastrointestinal disorder [Recovering/Resolving]
  - Nausea [Recovering/Resolving]
  - Dizziness [Recovering/Resolving]
  - Aggression [Recovering/Resolving]
  - Insomnia [Recovering/Resolving]
  - Pain [Recovering/Resolving]
  - Paraesthesia [Recovering/Resolving]
  - Increased upper airway secretion [Recovering/Resolving]
  - Tremor [Recovering/Resolving]
  - Attention deficit hyperactivity disorder [Recovering/Resolving]
  - Suffocation feeling [Recovering/Resolving]
  - Drug ineffective [Unknown]
  - Hypersensitivity [Unknown]
  - Hyperacusis [Unknown]

NARRATIVE: CASE EVENT DATE: 20000101
